FAERS Safety Report 5525374-X (Version None)
Quarter: 2007Q4

REPORT INFORMATION
  Report Type: 
  Country: None (occurrence: None)
  Receive Date: 20071120
  Receipt Date: 20071108
  Transmission Date: 20080405
  Serious: Yes (Other)
  Sender: FDA-Public Use
  Company Number: 2007SP022762

PATIENT
  Age: 61 Year
  Sex: Female

DRUGS (10)
  1. MIRALAX [Suspect]
     Indication: CONSTIPATION
     Dosage: PO
     Route: 048
     Dates: start: 20071030, end: 20071107
  2. LOTREL [Concomitant]
  3. SYNTHROID [Concomitant]
  4. VYTORIN [Concomitant]
  5. BISOPRAL [Concomitant]
  6. VITAMIN E [Concomitant]
  7. CALCIUM [Concomitant]
  8. VITAMIN D [Concomitant]
  9. MULTI-VITAMIN [Concomitant]
  10. ASPIRIN [Concomitant]

REACTIONS (5)
  - DRUG DOSE OMISSION [None]
  - GLOSSODYNIA [None]
  - HYPOAESTHESIA ORAL [None]
  - LIP SWELLING [None]
  - TREATMENT NONCOMPLIANCE [None]
